FAERS Safety Report 19786843 (Version 1)
Quarter: 2021Q3

REPORT INFORMATION
  Report Type: Spontaneous
  Country: PT (occurrence: PT)
  Receive Date: 20210903
  Receipt Date: 20210903
  Transmission Date: 20211014
  Serious: Yes (Hospitalization, Other)
  Sender: FDA-Public Use
  Company Number: PT-MYLANLABS-2021M1057645

PATIENT
  Age: 74 Year
  Sex: Male

DRUGS (1)
  1. LEVOFLOXACIN. [Suspect]
     Active Substance: LEVOFLOXACIN
     Indication: CYSTITIS
     Dosage: UNK

REACTIONS (11)
  - C-reactive protein increased [Recovered/Resolved]
  - Lipase increased [Recovered/Resolved]
  - Abdominal pain upper [Recovered/Resolved]
  - Pyrexia [Recovered/Resolved]
  - Leukocytosis [Recovered/Resolved]
  - Amylase increased [Recovered/Resolved]
  - Pancreatitis acute [Recovered/Resolved]
  - Abdominal tenderness [Recovered/Resolved]
  - Malaise [Recovered/Resolved]
  - Gastrointestinal sounds abnormal [Recovered/Resolved]
  - Nausea [Recovered/Resolved]
